FAERS Safety Report 23742745 (Version 4)
Quarter: 2024Q2

REPORT INFORMATION
  Report Type: Report from Study
  Country: US (occurrence: US)
  Receive Date: 20240415
  Receipt Date: 20240613
  Transmission Date: 20240716
  Serious: Yes (Hospitalization)
  Sender: FDA-Public Use
  Company Number: US-BAYER-2024A054427

PATIENT
  Age: 37 Year
  Sex: Female

DRUGS (5)
  1. ADEMPAS [Suspect]
     Active Substance: RIOCIGUAT
     Indication: Pulmonary arterial hypertension
     Dosage: UNK
  2. ADEMPAS [Suspect]
     Active Substance: RIOCIGUAT
     Indication: Pulmonary arterial hypertension
     Dosage: 2.5 MG, TID
     Route: 048
     Dates: start: 202008
  3. ADEMPAS [Suspect]
     Active Substance: RIOCIGUAT
     Indication: Pulmonary arterial hypertension
     Dosage: 2.5 MG, TID
     Route: 048
     Dates: start: 202105
  4. OPSUMIT [Concomitant]
     Active Substance: MACITENTAN
  5. REMODULIN [Concomitant]
     Active Substance: TREPROSTINIL

REACTIONS (4)
  - Acute kidney injury [None]
  - Abdominal pain [None]
  - Surgery [None]
  - Hospitalisation [None]

NARRATIVE: CASE EVENT DATE: 20240507
